FAERS Safety Report 6496774-9 (Version None)
Quarter: 2009Q4

REPORT INFORMATION
  Report Type: 
  Country: None (occurrence: None)
  Receive Date: 20091125
  Receipt Date: 20090417
  Transmission Date: 20100525
  Serious: Yes (Other)
  Sender: FDA-Public Use
  Company Number: 2009BH006082

PATIENT
  Age: 51 Year
  Sex: Female
  Weight: 98.5 kg

DRUGS (18)
  1. DIANEAL [Suspect]
     Indication: PERITONEAL DIALYSIS
     Dosage: 12 L; EVERY DAY; IP
     Route: 033
     Dates: end: 20090415
  2. PHENERGAN HCL [Concomitant]
  3. PIOGLITAZONE HYDROCHLORIDE [Concomitant]
  4. AGGRENOX [Concomitant]
  5. AMBIEN [Concomitant]
  6. AMLODIPINE [Concomitant]
  7. MUPIROCIN [Concomitant]
  8. LANTUS [Concomitant]
  9. LISINOPRIL [Concomitant]
  10. METOPROLOL SUCCINATE [Concomitant]
  11. NEPHROCAPS [Concomitant]
  12. NOVOLOG [Concomitant]
  13. PANTOPRAZOLE [Concomitant]
  14. REGLAN [Concomitant]
  15. SIMVASTATIN [Concomitant]
  16. ACETAMINOPHEN [Concomitant]
  17. HEPARIN [Concomitant]
  18. EPOGEN [Concomitant]

REACTIONS (3)
  - CATHETER SITE INFECTION [None]
  - PERITONEAL DIALYSIS COMPLICATION [None]
  - PERITONITIS BACTERIAL [None]
